FAERS Safety Report 20519017 (Version 2)
Quarter: 2022Q1

REPORT INFORMATION
  Report Type: Spontaneous
  Country: JP (occurrence: None)
  Receive Date: 20220225
  Receipt Date: 20220307
  Transmission Date: 20220423
  Serious: Yes (Death, Other)
  Sender: FDA-Public Use
  Company Number: 2022A082170

PATIENT
  Age: 52 Year
  Sex: Male
  Weight: 100 kg

DRUGS (6)
  1. SAPHNELO [Suspect]
     Active Substance: ANIFROLUMAB-FNIA
     Indication: Systemic lupus erythematosus
     Dosage: DOSE UNKNOWN
     Route: 041
     Dates: start: 20211229
  2. CYCLOPHOSPHAMIDE [Concomitant]
     Active Substance: CYCLOPHOSPHAMIDE
  3. MYCOPHENOLATE MOFETIL [Concomitant]
     Active Substance: MYCOPHENOLATE MOFETIL
  4. PREDONINE [Concomitant]
     Active Substance: PREDNISOLONE
  5. PREDONINE [Concomitant]
     Active Substance: PREDNISOLONE
  6. PREDONINE [Concomitant]
     Active Substance: PREDNISOLONE

REACTIONS (4)
  - General physical health deterioration [Fatal]
  - Disseminated intravascular coagulation [Fatal]
  - Escherichia infection [Unknown]
  - Cystitis haemorrhagic [Unknown]

NARRATIVE: CASE EVENT DATE: 20220104
